FAERS Safety Report 9453134 (Version 1)
Quarter: 2013Q3

REPORT INFORMATION
  Report Type: Spontaneous
  Country: JP (occurrence: None)
  Receive Date: 20130805
  Receipt Date: 20130805
  Transmission Date: 20140515
  Serious: Yes (Other)
  Sender: FDA-Public Use
  Company Number: 2013SA037627

PATIENT
  Age: 56 Year
  Sex: Male

DRUGS (1)
  1. IRBETAN [Suspect]
     Indication: HYPERTENSION
     Route: 048
     Dates: start: 20130216, end: 20130308

REACTIONS (2)
  - Hyperkalaemia [None]
  - Leukocytosis [None]
